FAERS Safety Report 8146635-4 (Version None)
Quarter: 2012Q1

REPORT INFORMATION
  Report Type: 
  Country: None (occurrence: None)
  Receive Date: 20120217
  Receipt Date: 20120201
  Transmission Date: 20120608
  Serious: No
  Sender: FDA-Public Use
  Company Number: US-ABBOTT-12P-163-0900387-00

PATIENT
  Sex: Male
  Weight: 83.99 kg

DRUGS (4)
  1. FISH OIL [Concomitant]
     Indication: PRODUCT USED FOR UNKNOWN INDICATION
  2. LISINOPRIL [Concomitant]
     Indication: PRODUCT USED FOR UNKNOWN INDICATION
  3. ADDERALL 5 [Concomitant]
     Indication: PRODUCT USED FOR UNKNOWN INDICATION
  4. SIMCOR [Suspect]
     Indication: CARDIOVASCULAR DISORDER
     Dosage: 1000/20 MG
     Dates: start: 20120126, end: 20120128

REACTIONS (4)
  - MUSCULOSKELETAL PAIN [None]
  - BACK PAIN [None]
  - ARTHRALGIA [None]
  - MYALGIA [None]
